FAERS Safety Report 10907007 (Version 1)
Quarter: 2015Q1

REPORT INFORMATION
  Report Type: Spontaneous
  Country: US (occurrence: None)
  Receive Date: 20150309
  Receipt Date: 20150309
  Transmission Date: 20150721
  Serious: Yes (Other)
  Sender: FDA-Public Use
  Company Number: None

PATIENT
  Age: 61 Year
  Sex: Male
  Weight: 92.53 kg

DRUGS (9)
  1. ATENOLOL. [Concomitant]
     Active Substance: ATENOLOL
  2. HCTZ/LISINOPRIL [Concomitant]
     Active Substance: HYDROCHLOROTHIAZIDE\LISINOPRIL
  3. MV [Concomitant]
  4. SENNOSIDES. [Concomitant]
     Active Substance: SENNOSIDES
  5. VIEKIRA PAK [Suspect]
     Active Substance: DASABUVIR\OMBITASVIR\PARITAPREVIR\RITONAVIR
     Indication: CHRONIC HEPATITIS C
     Dosage: AS DIRECTED
     Route: 048
     Dates: start: 20150203, end: 20150303
  6. RIBAVIRIN. [Concomitant]
     Active Substance: RIBAVIRIN
  7. IBUPROFEN. [Concomitant]
     Active Substance: IBUPROFEN
  8. INDOMETHACIN. [Concomitant]
     Active Substance: INDOMETHACIN
  9. TERAZOSIN [Concomitant]
     Active Substance: TERAZOSIN\TERAZOSIN HYDROCHLORIDE

REACTIONS (1)
  - Drug eruption [None]

NARRATIVE: CASE EVENT DATE: 20150224
